FAERS Safety Report 20817426 (Version 6)
Quarter: 2022Q3

REPORT INFORMATION
  Report Type: Report from Study
  Country: FR (occurrence: FR)
  Receive Date: 20220512
  Receipt Date: 20220714
  Transmission Date: 20221027
  Serious: Yes (Hospitalization, Other)
  Sender: FDA-Public Use
  Company Number: FR-ABBVIE-22K-056-4390670-00

PATIENT
  Age: 75 Year
  Sex: Female

DRUGS (2)
  1. CARBIDOPA\LEVODOPA [Suspect]
     Active Substance: CARBIDOPA\LEVODOPA
     Indication: Parkinson^s disease
     Dosage: 3.7 ML/HOUR
     Route: 050
     Dates: start: 202007
  2. CARBIDOPA\LEVODOPA [Suspect]
     Active Substance: CARBIDOPA\LEVODOPA

REACTIONS (15)
  - Prolapse [Not Recovered/Not Resolved]
  - Transfusion [Unknown]
  - Haemorrhage [Not Recovered/Not Resolved]
  - Apathy [Not Recovered/Not Resolved]
  - Moaning [Unknown]
  - Feeding intolerance [Unknown]
  - Hypophagia [Unknown]
  - Food craving [Unknown]
  - Abdominal pain [Unknown]
  - Dysphagia [Unknown]
  - Weight decreased [Unknown]
  - Asthenia [Not Recovered/Not Resolved]
  - Diarrhoea [Unknown]
  - Constipation [Not Recovered/Not Resolved]
  - Weight decreased [Not Recovered/Not Resolved]

NARRATIVE: CASE EVENT DATE: 20220101
